FAERS Safety Report 22400926 (Version 1)
Quarter: 2023Q2

REPORT INFORMATION
  Report Type: Spontaneous
  Country: US (occurrence: None)
  Receive Date: 20230601
  Receipt Date: 20230601
  Transmission Date: 20230722
  Serious: Yes (Disabling)
  Sender: FDA-Public Use
  Company Number: None

PATIENT
  Age: 76 Year
  Sex: Female
  Weight: 74.84 kg

DRUGS (8)
  1. LEVOFLOXACIN [Suspect]
     Active Substance: LEVOFLOXACIN
     Indication: Sepsis
     Dosage: OTHER FREQUENCY : BEDTIME;?
     Route: 048
  2. TRAZODONE [Concomitant]
     Active Substance: TRAZODONE HYDROCHLORIDE
  3. MELATONIN [Concomitant]
     Active Substance: MELATONIN
  4. VITAMINSS [Concomitant]
  5. D 3 [Concomitant]
  6. MAGNESIUM [Concomitant]
     Active Substance: MAGNESIUM
  7. PESERVISION [Concomitant]
  8. METRONIDAZOLE [Suspect]
     Active Substance: METRONIDAZOLE

REACTIONS (4)
  - Arthralgia [None]
  - Arthralgia [None]
  - Pain in extremity [None]
  - Tendon rupture [None]

NARRATIVE: CASE EVENT DATE: 20221009
